FAERS Safety Report 8862862 (Version 2)
Quarter: 2013Q1

REPORT INFORMATION
  Report Type: Spontaneous
  Country: DE (occurrence: DE)
  Receive Date: 20121026
  Receipt Date: 20130115
  Transmission Date: 20140127
  Serious: Yes (Other)
  Sender: FDA-Public Use
  Company Number: DE-GLAXOSMITHKLINE-D0077444A

PATIENT
  Sex: Female
  Weight: 56 kg

DRUGS (9)
  1. TYVERB [Suspect]
     Indication: BREAST CANCER METASTATIC
     Dosage: 250MG UNKNOWN
     Route: 048
     Dates: start: 20120925, end: 20121016
  2. NACOM 100 MG/25 MG TABLETTEN [Suspect]
     Indication: PARKINSON^S DISEASE
     Dosage: 125MG FOUR TIMES PER DAY
     Route: 048
  3. NACOM 100 MG/25 MG TABLETTEN [Suspect]
     Dosage: 125MG AT NIGHT
     Route: 048
  4. BISOPROLOL [Concomitant]
     Dosage: 5MG AT NIGHT
     Route: 048
  5. LISINOPRIL [Concomitant]
     Dosage: 10MG PER DAY
     Route: 048
  6. BONDRONAT [Concomitant]
     Dosage: 50MG IN THE MORNING
     Route: 048
  7. SEROQUEL [Concomitant]
     Dosage: 25MG AT NIGHT
     Route: 048
  8. HCT [Concomitant]
     Dosage: 12.5MG PER DAY
     Route: 048
  9. LETROZOLE [Concomitant]
     Dosage: 2.5MG IN THE MORNING
     Route: 048

REACTIONS (6)
  - Parkinson^s disease [Unknown]
  - Muscle spasms [Unknown]
  - Parkinsonian gait [Unknown]
  - Tremor [Unknown]
  - Aphagia [None]
  - Fluid intake reduced [None]
